FAERS Safety Report 10283752 (Version 1)
Quarter: 2014Q3

REPORT INFORMATION
  Report Type: Spontaneous
  Country: US (occurrence: None)
  Receive Date: 20140703
  Receipt Date: 20140703
  Transmission Date: 20150326
  Serious: Yes (Life-Threatening, Hospitalization)
  Sender: FDA-Public Use
  Company Number: None

PATIENT
  Age: 80 Year
  Sex: Female
  Weight: 68.5 kg

DRUGS (2)
  1. ALTEPLASE [Suspect]
     Active Substance: ALTEPLASE
     Indication: ISCHAEMIC STROKE
     Dosage: 61.6 MG ONE TIME INTRAVENOUS
     Route: 042
     Dates: start: 20140701, end: 20140701
  2. INSULIN DRIP [Concomitant]

REACTIONS (1)
  - Subdural haemorrhage [None]

NARRATIVE: CASE EVENT DATE: 20140701
